FAERS Safety Report 6112064-8 (Version None)
Quarter: 2009Q1

REPORT INFORMATION
  Report Type: 
  Country: None (occurrence: None)
  Receive Date: 20090311
  Receipt Date: 20090227
  Transmission Date: 20090719
  Serious: Yes (Hospitalization, Other)
  Sender: FDA-Public Use
  Company Number: JP-PFIZER INC-2008087703

PATIENT

DRUGS (6)
  1. AZULFIDINE [Suspect]
     Dosage: UNK
     Route: 048
     Dates: start: 20001101
  2. RIMATIL [Suspect]
     Route: 048
     Dates: start: 19950101
  3. SHIOSOL [Suspect]
  4. PREDNISOLONE [Concomitant]
  5. TAKEPRON [Concomitant]
  6. DRUG, UNSPECIFIED [Concomitant]

REACTIONS (2)
  - GASTROINTESTINAL SURGERY [None]
  - MYELODYSPLASTIC SYNDROME [None]
